FAERS Safety Report 18223122 (Version 31)
Quarter: 2025Q1

REPORT INFORMATION
  Report Type: Report from Study
  Country: US (occurrence: US)
  Receive Date: 20200902
  Receipt Date: 20250121
  Transmission Date: 20250408
  Serious: Yes (Hospitalization, Other)
  Sender: TAKEDA
  Company Number: US-SHIRE-US202028294

PATIENT
  Age: 56 Year
  Sex: Female
  Weight: 58 kg

DRUGS (44)
  1. .ALPHA.1-PROTEINASE INHIBITOR HUMAN [Suspect]
     Active Substance: .ALPHA.1-PROTEINASE INHIBITOR HUMAN
     Indication: Alpha-1 antitrypsin deficiency
     Dosage: UNK UNK, Q2WEEKS
     Dates: start: 20071002
  2. .ALPHA.1-PROTEINASE INHIBITOR HUMAN [Suspect]
     Active Substance: .ALPHA.1-PROTEINASE INHIBITOR HUMAN
     Dosage: 125 MILLIGRAM, 1/WEEK
  3. .ALPHA.1-PROTEINASE INHIBITOR HUMAN [Suspect]
     Active Substance: .ALPHA.1-PROTEINASE INHIBITOR HUMAN
     Dosage: 6714 MILLIGRAM, Q2WEEKS
     Dates: start: 20090303
  4. .ALPHA.1-PROTEINASE INHIBITOR HUMAN [Suspect]
     Active Substance: .ALPHA.1-PROTEINASE INHIBITOR HUMAN
     Dosage: 6774 MILLIGRAM, Q2WEEKS
  5. .ALPHA.1-PROTEINASE INHIBITOR HUMAN [Suspect]
     Active Substance: .ALPHA.1-PROTEINASE INHIBITOR HUMAN
     Dosage: 6714 MILLIGRAM, Q2WEEKS
  6. .ALPHA.1-PROTEINASE INHIBITOR HUMAN [Suspect]
     Active Substance: .ALPHA.1-PROTEINASE INHIBITOR HUMAN
     Dosage: UNK UNK, Q2WEEKS
  7. .ALPHA.1-PROTEINASE INHIBITOR HUMAN [Suspect]
     Active Substance: .ALPHA.1-PROTEINASE INHIBITOR HUMAN
     Dosage: 6690 MILLIGRAM, Q2WEEKS
  8. .ALPHA.1-PROTEINASE INHIBITOR HUMAN [Suspect]
     Active Substance: .ALPHA.1-PROTEINASE INHIBITOR HUMAN
     Dosage: 125 MILLIGRAM/KILOGRAM, Q2WEEKS
  9. DIPHENHYDRAMINE [Concomitant]
     Active Substance: DIPHENHYDRAMINE
  10. IBUPROFEN [Concomitant]
     Active Substance: IBUPROFEN
  11. SODIUM CHLORIDE [Concomitant]
     Active Substance: SODIUM CHLORIDE
  12. EPINEPHRINE [Concomitant]
     Active Substance: EPINEPHRINE
  13. FLUTICASONE PROPIONATE [Concomitant]
     Active Substance: FLUTICASONE PROPIONATE
  14. SPIRIVA [Concomitant]
     Active Substance: TIOTROPIUM BROMIDE MONOHYDRATE
  15. SINGULAIR [Concomitant]
     Active Substance: MONTELUKAST SODIUM
  16. GABAPENTIN [Concomitant]
     Active Substance: GABAPENTIN
  17. CLONAZEPAM [Concomitant]
     Active Substance: CLONAZEPAM
  18. OXYGEN [Concomitant]
     Active Substance: OXYGEN
  19. PROMETHAZINE HYDROCHLORIDE [Concomitant]
     Active Substance: PROMETHAZINE HYDROCHLORIDE
  20. ALBUTEROL SULFATE [Concomitant]
     Active Substance: ALBUTEROL SULFATE
  21. ACETAMINOPHEN [Concomitant]
     Active Substance: ACETAMINOPHEN
  22. BUPROPION HYDROCHLORIDE [Concomitant]
     Active Substance: BUPROPION HYDROCHLORIDE
  23. VENLAFAXINE HCL [Concomitant]
     Active Substance: VENLAFAXINE HYDROCHLORIDE
  24. Lmx [Concomitant]
  25. PANTOPRAZOLE SODIUM [Concomitant]
     Active Substance: PANTOPRAZOLE SODIUM
  26. VITAMIN C [Concomitant]
     Active Substance: ASCORBIC ACID
  27. VITAMINS [Concomitant]
     Active Substance: VITAMINS
  28. HYDROXYZINE [Concomitant]
     Active Substance: HYDROXYZINE HYDROCHLORIDE
  29. HEPARIN [Concomitant]
     Active Substance: HEPARIN SODIUM
  30. ZYRTEC [Concomitant]
     Active Substance: CETIRIZINE HYDROCHLORIDE
  31. FLUAD NOS [Concomitant]
     Active Substance: INFLUENZA VIRUS VACCINE
  32. FLUBLOK [Concomitant]
     Active Substance: INFLUENZA A VIRUS A/CALIFORNIA/7/2009 (H1N1) RECOMBINANT HEMAGGLUTININ ANTIGEN\INFLUENZA A VIRUS A/V
  33. RELION ALCOHOL SWABS WITH PAIN RELIEF [Concomitant]
  34. BREO ELLIPTA [Concomitant]
     Active Substance: FLUTICASONE FUROATE\VILANTEROL TRIFENATATE
  35. VENTOLIN [Concomitant]
     Active Substance: ALBUTEROL SULFATE
  36. TAB A VITE [Concomitant]
  37. THEOPHYLLINE [Concomitant]
     Active Substance: THEOPHYLLINE
  38. MECLIZINE HYDROCHLORIDE [Concomitant]
     Active Substance: MECLIZINE HYDROCHLORIDE
  39. PROMETHAZINE [Concomitant]
     Active Substance: PROMETHAZINE HYDROCHLORIDE
  40. OMEPRAZOLE [Concomitant]
     Active Substance: OMEPRAZOLE
  41. TYLENOL [Concomitant]
     Active Substance: ACETAMINOPHEN
  42. DIPHENHYDRAMINE HYDROCHLORIDE [Concomitant]
     Active Substance: DIPHENHYDRAMINE HYDROCHLORIDE
  43. SYMBICORT [Concomitant]
     Active Substance: BUDESONIDE\FORMOTEROL FUMARATE DIHYDRATE
  44. PREDNISONE [Concomitant]
     Active Substance: PREDNISONE

REACTIONS (40)
  - Vascular device infection [Unknown]
  - COVID-19 [Recovered/Resolved]
  - Suicidal ideation [Unknown]
  - Candida infection [Unknown]
  - Throat irritation [Unknown]
  - Stomatitis [Unknown]
  - Heart rate increased [Unknown]
  - Fall [Unknown]
  - Musculoskeletal chest pain [Unknown]
  - Pain in extremity [Unknown]
  - Vertigo [Unknown]
  - Respiratory disorder [Unknown]
  - Productive cough [Recovered/Resolved]
  - Memory impairment [Unknown]
  - Balance disorder [Unknown]
  - Allergy to plants [Unknown]
  - Dysphonia [Unknown]
  - Pyrexia [Recovered/Resolved]
  - Arthralgia [Unknown]
  - Depression [Unknown]
  - Hernia pain [Unknown]
  - Product use issue [Unknown]
  - Product dose omission issue [Unknown]
  - Inappropriate schedule of product administration [Unknown]
  - Abdominal pain upper [Unknown]
  - Decreased appetite [Unknown]
  - Respiratory tract infection [Unknown]
  - Heart rate abnormal [Unknown]
  - Chest discomfort [Unknown]
  - Somnolence [Unknown]
  - Vomiting [Unknown]
  - Abdominal pain [Unknown]
  - Back pain [Unknown]
  - Rhinorrhoea [Unknown]
  - Dyspnoea [Unknown]
  - Cough [Recovered/Resolved]
  - Dizziness [Unknown]
  - Upper respiratory tract infection [Unknown]
  - Fatigue [Unknown]
  - Nausea [Unknown]

NARRATIVE: CASE EVENT DATE: 20240927
